FAERS Safety Report 22355078 (Version 4)
Quarter: 2023Q4

REPORT INFORMATION
  Report Type: Spontaneous
  Country: US (occurrence: US)
  Receive Date: 20230523
  Receipt Date: 20231115
  Transmission Date: 20240110
  Serious: No
  Sender: FDA-Public Use
  Company Number: US-PFIZER INC-US-GBT-022059

PATIENT
  Age: 45 Year
  Sex: Male

DRUGS (4)
  1. OXBRYTA [Suspect]
     Active Substance: VOXELOTOR
     Indication: Sickle cell anaemia
     Dosage: 1000 MG, 1X/DAY
     Route: 048
     Dates: start: 20230413
  2. OXBRYTA [Suspect]
     Active Substance: VOXELOTOR
     Indication: Haemoglobin decreased
     Dosage: 1500 MG, 1X/DAY
     Route: 048
     Dates: start: 202305
  3. TYLENOL [Concomitant]
     Active Substance: ACETAMINOPHEN
     Dosage: UNK, AS NEEDED
  4. IBUPROFEN [Concomitant]
     Active Substance: IBUPROFEN
     Dosage: UNK, AS NEEDED

REACTIONS (2)
  - Pain [Unknown]
  - Mental disorder [Unknown]

NARRATIVE: CASE EVENT DATE: 20230101
